FAERS Safety Report 22062690 (Version 2)
Quarter: 2023Q2

REPORT INFORMATION
  Report Type: Spontaneous
  Country: US (occurrence: US)
  Receive Date: 20230306
  Receipt Date: 20230505
  Transmission Date: 20230721
  Serious: Yes (Death, Life-Threatening, Hospitalization, Other)
  Sender: FDA-Public Use
  Company Number: US-MLMSERVICE-20230208-4091394-2

PATIENT

DRUGS (1)
  1. ATORVASTATIN [Suspect]
     Active Substance: ATORVASTATIN
     Indication: Product used for unknown indication
     Route: 065

REACTIONS (6)
  - Septic shock [Fatal]
  - Gastrointestinal haemorrhage [Fatal]
  - Pneumonia aspiration [Fatal]
  - Pulmonary embolism [Fatal]
  - Acute respiratory failure [Fatal]
  - Immune-mediated myositis [Fatal]
